FAERS Safety Report 9318444 (Version 1)
Quarter: 2013Q2

REPORT INFORMATION
  Report Type: Spontaneous
  Country: US (occurrence: US)
  Receive Date: 20130530
  Receipt Date: 20130530
  Transmission Date: 20140414
  Serious: No
  Sender: FDA-Public Use
  Company Number: US-NOVEN-12US005766

PATIENT
  Age: 29 Year
  Sex: Female
  Weight: 68.03 kg

DRUGS (7)
  1. DAYTRANA [Suspect]
     Indication: ATTENTION DEFICIT/HYPERACTIVITY DISORDER
     Dosage: 15 MG, QD
     Route: 062
     Dates: start: 20121130
  2. LATUDA [Concomitant]
  3. LAMICTAL [Concomitant]
  4. LEXAPRO [Concomitant]
  5. CYMBALTA [Concomitant]
  6. XANAX [Concomitant]
  7. OMNARIS [Concomitant]

REACTIONS (5)
  - Off label use [Not Recovered/Not Resolved]
  - Drug administration error [Not Recovered/Not Resolved]
  - Incorrect drug administration duration [Not Recovered/Not Resolved]
  - No adverse event [None]
  - Product quality issue [Not Recovered/Not Resolved]
